FAERS Safety Report 12758265 (Version 1)
Quarter: 2016Q3

REPORT INFORMATION
  Report Type: Spontaneous
  Country: GB (occurrence: GB)
  Receive Date: 20160919
  Receipt Date: 20160919
  Transmission Date: 20161109
  Serious: Yes (Other)
  Sender: FDA-Public Use
  Company Number: GB-GLAXOSMITHKLINE-GB2016132875

PATIENT
  Age: 52 Year
  Sex: Female
  Weight: 64 kg

DRUGS (9)
  1. RANITIDINE. [Suspect]
     Active Substance: RANITIDINE
     Indication: PRODUCT USED FOR UNKNOWN INDICATION
     Dosage: UNK
     Route: 065
     Dates: start: 20160711
  2. AVEENO [Concomitant]
     Active Substance: DIMETHICONE\HOMOSALATE\OCTINOXATE\OCTISALATE\TITANIUM DIOXIDE
     Dosage: UNK, AS DIRECTED.
     Dates: start: 20160818
  3. DOUBLEBASE [Concomitant]
     Active Substance: ISOPROPYL MYRISTATE\PARAFFIN
     Dosage: UNK
     Dates: start: 20160811
  4. OMEPRAZOLE. [Concomitant]
     Active Substance: OMEPRAZOLE
     Dosage: 1 DF, QD, 1 EVERY DAY
     Dates: start: 20150326, end: 20160711
  5. FUCIDIN [Concomitant]
     Active Substance: FUSIDIC ACID
     Dosage: UNK, USE AS DIRECTED
     Dates: start: 20160818, end: 20160823
  6. ZEROCREAM [Concomitant]
     Dosage: UNK, USE AS DIRECTED
     Dates: start: 20160726, end: 20160823
  7. ACCRETE D3 [Concomitant]
     Dosage: 1 DF, BID
     Dates: start: 20160216
  8. ACICLOVIR [Concomitant]
     Active Substance: ACYCLOVIR
     Dosage: 1 DF, UNK, APPLY 5 TIMES ONE DAY.
     Dates: start: 20160711, end: 20160808
  9. LEVOTHYROXINE. [Concomitant]
     Active Substance: LEVOTHYROXINE
     Dosage: 3 DF, UNK, ONE AND TWO ON ALTERNATIVE DAYS.
     Dates: start: 20131114

REACTIONS (3)
  - Dizziness [Recovered/Resolved]
  - Palpitations [Recovered/Resolved]
  - Chest discomfort [Recovered/Resolved]

NARRATIVE: CASE EVENT DATE: 20160902
